FAERS Safety Report 20050365 (Version 1)
Quarter: 2021Q4

REPORT INFORMATION
  Report Type: Spontaneous
  Country: SK (occurrence: SK)
  Receive Date: 20211109
  Receipt Date: 20211109
  Transmission Date: 20220304
  Serious: Yes (Hospitalization, Other)
  Sender: FDA-Public Use
  Company Number: SK-ABBVIE-21K-260-4147342-00

PATIENT
  Age: 22 Year
  Sex: Male

DRUGS (3)
  1. VALPROATE SODIUM [Suspect]
     Active Substance: VALPROATE SODIUM
     Indication: Bipolar disorder
     Route: 065
  2. LEVOMEPROMAZINE [Suspect]
     Active Substance: LEVOMEPROMAZINE
     Indication: Bipolar disorder
     Route: 065
  3. HALOPERIDOL [Suspect]
     Active Substance: HALOPERIDOL
     Indication: Bipolar disorder
     Route: 065

REACTIONS (10)
  - Escherichia infection [Recovered/Resolved]
  - Chlamydial infection [Recovered/Resolved]
  - C-reactive protein increased [Recovered/Resolved]
  - Upper respiratory tract infection [Recovered/Resolved]
  - Central nervous system lesion [Recovered/Resolved]
  - White blood cell count increased [Recovered/Resolved]
  - Extrapyramidal disorder [Unknown]
  - Pyrexia [Recovered/Resolved]
  - Therapeutic product effect incomplete [Recovered/Resolved]
  - Aggression [Recovered/Resolved]
